FAERS Safety Report 6823743-9 (Version None)
Quarter: 2010Q3

REPORT INFORMATION
  Report Type: 
  Country: None (occurrence: None)
  Receive Date: 20100708
  Receipt Date: 20061104
  Transmission Date: 20110219
  Serious: No
  Sender: FDA-Public Use
  Company Number: US-PFIZER INC-2006104682

PATIENT
  Sex: Female
  Weight: 99.79 kg

DRUGS (2)
  1. CHANTIX [Suspect]
     Indication: TOBACCO ABUSE
     Route: 048
     Dates: start: 20060601, end: 20060801
  2. WELLBUTRIN [Interacting]
     Indication: DEPRESSION
     Dates: start: 20060601, end: 20060801

REACTIONS (2)
  - DRUG INTERACTION [None]
  - FEELING ABNORMAL [None]
